FAERS Safety Report 16875535 (Version 2)
Quarter: 2021Q4

REPORT INFORMATION
  Report Type: Report from Study
  Country: JP (occurrence: JP)
  Receive Date: 20191002
  Receipt Date: 20211222
  Transmission Date: 20220303
  Serious: Yes (Death, Other)
  Sender: FDA-Public Use
  Company Number: JP-KYOWAKIRIN-2016JPN-NSP000856

PATIENT
  Age: 60 Year
  Sex: Female

DRUGS (6)
  1. DARBEPOETIN ALFA [Suspect]
     Active Substance: DARBEPOETIN ALFA
     Indication: Myelodysplastic syndrome
     Dosage: 240 MICROGRAM
     Route: 058
     Dates: start: 20161024, end: 20161024
  2. LEVOFLOXACIN [Concomitant]
     Active Substance: LEVOFLOXACIN
     Dosage: 500 MILLIGRAM
     Route: 048
     Dates: end: 20170121
  3. ITRACONAZOLE [Concomitant]
     Active Substance: ITRACONAZOLE
     Dosage: 200 MILLIGRAM
     Route: 048
     Dates: end: 20170121
  4. MENATETRENONE [Concomitant]
     Active Substance: MENATETRENONE
     Dosage: 45 MILLIGRAM
     Route: 048
     Dates: end: 20170121
  5. PRAMIEL [METOCLOPRAMIDE] [Concomitant]
     Dosage: 15 MILLIGRAM
     Route: 065
     Dates: end: 20170121
  6. LANSOPRAZOLE [Concomitant]
     Active Substance: LANSOPRAZOLE
     Dosage: 15 MILLIGRAM
     Route: 048
     Dates: end: 20170121

REACTIONS (4)
  - Death [Fatal]
  - Chills [Recovered/Resolved]
  - Pyrexia [Recovered/Resolved]
  - Headache [Recovered/Resolved]

NARRATIVE: CASE EVENT DATE: 20161031
